FAERS Safety Report 8512837-8 (Version None)
Quarter: 2012Q3

REPORT INFORMATION
  Report Type: 
  Country: None (occurrence: None)
  Receive Date: 20120716
  Receipt Date: 20120605
  Transmission Date: 20120928
  Serious: Yes (Other)
  Sender: FDA-Public Use
  Company Number: LB-BAYER-2011-081532

PATIENT
  Age: 36 Year
  Sex: Female
  Weight: 69.841 kg

DRUGS (1)
  1. MIRENA [Suspect]
     Dosage: UNK
     Dates: start: 20090201

REACTIONS (6)
  - AMENORRHOEA [None]
  - EPICONDYLITIS [None]
  - DEVICE DISLOCATION [None]
  - INFECTIVE TENOSYNOVITIS [None]
  - PREGNANCY WITH CONTRACEPTIVE DEVICE [None]
  - NAUSEA [None]
